FAERS Safety Report 16598699 (Version 7)
Quarter: 2020Q4

REPORT INFORMATION
  Report Type: Report from Study
  Country: GB (occurrence: GB)
  Receive Date: 20190719
  Receipt Date: 20201203
  Transmission Date: 20210113
  Serious: Yes (Death, Hospitalization, Disabling, Other)
  Sender: FDA-Public Use
  Company Number: GB-PFIZER INC-2019089191

PATIENT
  Age: 37 Year
  Sex: Female

DRUGS (49)
  1. DOCETAXEL. [Suspect]
     Active Substance: DOCETAXEL
     Dosage: 108 MG, EVERY 3 WEEKS
     Route: 042
     Dates: start: 20150925, end: 20151127
  2. CAPECITABINE. [Suspect]
     Active Substance: CAPECITABINE
     Indication: BREAST CANCER METASTATIC
     Dosage: 500 MG, UNK
     Route: 048
     Dates: start: 20181031, end: 20190130
  3. ZOLEDRONIC ACID [Concomitant]
     Active Substance: ZOLEDRONIC ACID
     Dosage: 4 MG, MONTHLY
     Route: 042
     Dates: start: 20151027, end: 20190703
  4. FILGRASTIM [Concomitant]
     Active Substance: FILGRASTIM
     Dosage: 300 UG, 1X/DAY
     Route: 058
     Dates: start: 20151025, end: 20151031
  5. FILGRASTIM [Concomitant]
     Active Substance: FILGRASTIM
     Dosage: 300 UG, 1X/DAY
     Route: 058
     Dates: start: 20151120, end: 20151126
  6. E45 [Concomitant]
     Active Substance: LANOLIN\LIGHT MINERAL OIL\PARAFFIN
     Dosage: 30 G, UNK
     Route: 061
     Dates: start: 20151116
  7. PERTUZUMAB. [Suspect]
     Active Substance: PERTUZUMAB
     Indication: BREAST CANCER METASTATIC
     Dosage: LOADING DOSE
     Route: 042
     Dates: start: 20150721, end: 20150721
  8. VINORELBINE [Suspect]
     Active Substance: VINORELBINE TARTRATE
     Indication: BREAST CANCER METASTATIC
     Dosage: 110 MG, UNK
     Route: 048
     Dates: start: 20190522, end: 20190529
  9. TRASTUZUMAB EMTANSINE [Suspect]
     Active Substance: ADO-TRASTUZUMAB EMTANSINE
     Indication: BREAST CANCER METASTATIC
     Dosage: 240 MG, EVERY 3 WEEKS
     Route: 042
     Dates: start: 20180625, end: 20180928
  10. VITAMIN C [Concomitant]
     Active Substance: ASCORBIC ACID
     Dosage: UNK UNK, 1X/DAY
     Route: 048
     Dates: start: 20171213, end: 20190703
  11. VERAPAMIL [Concomitant]
     Active Substance: VERAPAMIL HYDROCHLORIDE
     Indication: VENTRICULAR EXTRASYSTOLES
     Dosage: UNK
     Route: 048
     Dates: start: 20160906, end: 20190703
  12. METRONIDAZOLE. [Concomitant]
     Active Substance: METRONIDAZOLE
     Dosage: 0.75 %, (TIME INTERVAL: 0.33 D) 2.25 %, DAILY
     Route: 061
     Dates: start: 20190508, end: 20190529
  13. FILGRASTIM [Concomitant]
     Active Substance: FILGRASTIM
     Dosage: 300 UG, 1X/DAY
     Route: 058
     Dates: start: 20151005, end: 20151008
  14. CALCICHEW D3 FORTE [Concomitant]
     Active Substance: CALCIUM\CHOLECALCIFEROL
     Dosage: UNK UNK, 2X/DAY
     Route: 048
     Dates: start: 20150720, end: 20190703
  15. BISOPROLOL [Concomitant]
     Active Substance: BISOPROLOL
     Dosage: 1.25 MG, 1X/DAY
     Route: 048
     Dates: start: 20160826, end: 20160906
  16. GENTAMICIN. [Concomitant]
     Active Substance: GENTAMICIN
     Indication: PNEUMONIA
     Dosage: 345 MG, 1X/DAY
     Route: 042
     Dates: start: 20151005, end: 20151008
  17. PARACETAMOL [Concomitant]
     Active Substance: ACETAMINOPHEN
     Dosage: 1 G, 4X/DAY
     Route: 048
     Dates: start: 20151006, end: 20151008
  18. PARACETAMOL [Concomitant]
     Active Substance: ACETAMINOPHEN
     Dosage: FREQ:.25 D;
     Route: 048
     Dates: start: 20151006, end: 20151008
  19. TRIMETHOPRIM. [Concomitant]
     Active Substance: TRIMETHOPRIM
     Dosage: 200 MG, 2X/DAY (0.5 DAY)
     Route: 048
     Dates: start: 20151014, end: 20151202
  20. DOCETAXEL. [Suspect]
     Active Substance: DOCETAXEL
     Dosage: 86 MG, EVERY 3 WEEKS
     Route: 042
     Dates: start: 20150814, end: 20150904
  21. TRASTUZUMAB. [Suspect]
     Active Substance: TRASTUZUMAB
     Dosage: 400 MG, EVERY 3 WEEKS (MAINTAINANCE DOSE 6 MG/KG (400 MG EVERY 3 WEEKS))
     Route: 042
     Dates: start: 20150814, end: 20180511
  22. METRONIDAZOLE. [Concomitant]
     Active Substance: METRONIDAZOLE
     Dosage: 400 MG, 3X/DAY (0.33 DAY)
     Route: 048
     Dates: start: 20151005
  23. PROCHLORPERAZINE. [Concomitant]
     Active Substance: PROCHLORPERAZINE
     Dosage: 5 MG, 3X/DAY (0.33 DAY)
     Route: 048
     Dates: start: 20160106, end: 20160113
  24. ONDANSETRON [Concomitant]
     Active Substance: ONDANSETRON
     Dosage: 8 MG, UNK
     Route: 048
     Dates: start: 20190522, end: 20190610
  25. TRASTUZUMAB. [Suspect]
     Active Substance: TRASTUZUMAB
     Indication: BREAST CANCER METASTATIC
     Dosage: 525 MG SINGLE (LOADING DOSE 8 MG/KG)
     Route: 042
     Dates: start: 20150721, end: 20150721
  26. NYSTATIN. [Concomitant]
     Active Substance: NYSTATIN
     Indication: ORAL CANDIDIASIS
     Dosage: UNK, 4X/DAY
     Route: 048
     Dates: start: 20190614, end: 20190629
  27. HALOPERIDOL. [Concomitant]
     Active Substance: HALOPERIDOL
     Dosage: 1.5 MG, UNK
     Dates: start: 20190702, end: 20190703
  28. COD LIVER OIL [Concomitant]
     Active Substance: COD LIVER OIL
     Route: 048
     Dates: start: 20171213, end: 20190703
  29. PERTUZUMAB. [Suspect]
     Active Substance: PERTUZUMAB
     Dosage: MAINTAINANCE DOSE
     Route: 042
     Dates: start: 20150814, end: 20180511
  30. NERATINIB [Suspect]
     Active Substance: NERATINIB
     Indication: BREAST CANCER METASTATIC
     Dosage: 240 MG, 1X/DAY
     Route: 048
     Dates: start: 20181101, end: 20190109
  31. LOPERAMIDE [Concomitant]
     Active Substance: LOPERAMIDE
     Dosage: 2 MG, UNK
     Route: 048
     Dates: start: 20181101, end: 20190703
  32. LORAZEPAM. [Concomitant]
     Active Substance: LORAZEPAM
     Indication: ANXIETY
     Dosage: 1 MG, UNK
     Route: 048
     Dates: start: 20190611, end: 20190703
  33. BUDESONIDE. [Concomitant]
     Active Substance: BUDESONIDE
     Dosage: 9 MG, UNK
     Route: 048
     Dates: start: 20181101, end: 20181129
  34. GLYCEROL [Concomitant]
     Active Substance: GLYCERIN
     Indication: CONSTIPATION
     Dosage: 4 G, UNK
     Dates: start: 20190513, end: 20190629
  35. MIDAZOLAM. [Concomitant]
     Active Substance: MIDAZOLAM
     Indication: INSOMNIA
     Dosage: 1.25 MG, UNK
     Route: 058
     Dates: start: 20190702, end: 20190703
  36. DOCETAXEL. [Suspect]
     Active Substance: DOCETAXEL
     Indication: BREAST CANCER METASTATIC
     Dosage: 108 MG, EVERY 3 WEEKS
     Route: 042
     Dates: start: 20150722, end: 20150722
  37. ERIBULIN MESYLATE [Suspect]
     Active Substance: ERIBULIN MESYLATE
     Indication: BREAST CANCER METASTATIC
     Dosage: 2.5 MG, EVERY 3 WEEKS
     Route: 042
     Dates: start: 20190222, end: 20190412
  38. GENTAMICIN. [Concomitant]
     Active Substance: GENTAMICIN
     Dosage: UNK
     Route: 042
     Dates: start: 20190627, end: 20190701
  39. GLUCOSAMINE [Concomitant]
     Active Substance: GLUCOSAMINE
     Dosage: UNK UNK, 1X/DAY
     Route: 048
     Dates: start: 20171213, end: 20190703
  40. AMITRIPTYLINE HYDROCHLORIDE. [Concomitant]
     Active Substance: AMITRIPTYLINE HYDROCHLORIDE
     Dosage: 10 MG, UNK
     Route: 048
     Dates: start: 20190213, end: 20190703
  41. CO-AMOXICLAV [AMOXICILLIN;CLAVULANATE POTASSIUM] [Concomitant]
     Active Substance: AMOXICILLIN\CLAVULANATE POTASSIUM
     Dosage: 1 DF, 3X/DAY (0.33 DAY)
     Route: 048
     Dates: start: 20190513, end: 20190520
  42. MACROGOL [Concomitant]
     Active Substance: POLYETHYLENE GLYCOLS
     Indication: CONSTIPATION
     Dosage: UNK, 3X/DAY
     Route: 048
     Dates: start: 20190513, end: 20190629
  43. CYCLIZINE HYDROCHLORIDE [Concomitant]
     Active Substance: CYCLIZINE HYDROCHLORIDE
     Indication: NAUSEA
     Dosage: 50 MG, 3X/DAY (0.33 DAY)
     Route: 048
     Dates: start: 20181121, end: 20190703
  44. TRASTUZUMAB/VORHYALURONIDASE ALFA [Suspect]
     Active Substance: HYALURONIDASE (HUMAN RECOMBINANT)\TRASTUZUMAB
     Indication: BREAST CANCER METASTATIC
     Dosage: 600 MG, EVERY 3 WEEKS
     Route: 058
     Dates: start: 20190522, end: 20190529
  45. COD-LIVER OIL [Concomitant]
     Active Substance: COD LIVER OIL
     Dosage: UNK
     Route: 048
     Dates: start: 20171213, end: 20190703
  46. DOMPERIDONE [Concomitant]
     Active Substance: DOMPERIDONE
     Dosage: TID FOR 3 DAYS AFTER DAY 1 AND 8 OF CHEM
     Route: 048
     Dates: start: 20190216, end: 20190610
  47. FLUCLOXACILLIN [Concomitant]
     Active Substance: FLUCLOXACILLIN
     Indication: PNEUMONIA
     Dosage: UNK
     Dates: start: 20190627, end: 20190703
  48. FLUCLOXACILLIN [Concomitant]
     Active Substance: FLUCLOXACILLIN
     Indication: PSEUDOMONAS INFECTION
  49. ZOPICLONE [Concomitant]
     Active Substance: ZOPICLONE
     Indication: INSOMNIA
     Dosage: 3.75 MG, UNK
     Route: 048
     Dates: start: 20190521, end: 20190603

REACTIONS (9)
  - Pseudomonas infection [Not Recovered/Not Resolved]
  - Cough [Not Recovered/Not Resolved]
  - Breast pain [Not Recovered/Not Resolved]
  - Pneumothorax [Recovering/Resolving]
  - Breast pain [Recovered/Resolved]
  - Pneumonia [Fatal]
  - Ureteric obstruction [Recovered/Resolved]
  - Pleural effusion [Not Recovered/Not Resolved]
  - Musculoskeletal chest pain [Not Recovered/Not Resolved]

NARRATIVE: CASE EVENT DATE: 20160316
